FAERS Safety Report 19937493 (Version 1)
Quarter: 2021Q4

REPORT INFORMATION
  Report Type: Spontaneous
  Country: DE (occurrence: DE)
  Receive Date: 20211011
  Receipt Date: 20211011
  Transmission Date: 20220303
  Serious: Yes (Other)
  Sender: FDA-Public Use
  Company Number: DE-AMGEN-DEUSP2021153155

PATIENT
  Age: 58 Year
  Sex: Female
  Weight: 57 kg

DRUGS (11)
  1. XGEVA [Suspect]
     Active Substance: DENOSUMAB
     Indication: Metastases to bone
     Dosage: 120 MILLIGRAM
     Route: 058
     Dates: start: 20110204, end: 20121102
  2. XGEVA [Suspect]
     Active Substance: DENOSUMAB
     Indication: Prophylaxis
  3. CAPECITABINE [Concomitant]
     Active Substance: CAPECITABINE
     Dosage: 2000 MILLIGRAM PER SQUARE METER
     Dates: start: 20120716, end: 20120729
  4. CAPECITABINE [Concomitant]
     Active Substance: CAPECITABINE
     Dosage: 1500 2000 MILLIGRAM PER SQUARE METER
     Dates: start: 20120806, end: 20120820
  5. CAPECITABINE [Concomitant]
     Active Substance: CAPECITABINE
     Dosage: 1500 2000 MILLIGRAM PER SQUARE METER
     Dates: start: 20120827, end: 20120909
  6. CEFUROXIME [Concomitant]
     Active Substance: CEFUROXIME
     Indication: Prophylaxis
     Dosage: 500 MILLIGRAM
     Dates: start: 20120918, end: 20120922
  7. IMODIUM [Concomitant]
     Active Substance: LOPERAMIDE HYDROCHLORIDE
     Indication: Prophylaxis
     Dosage: UNK
     Dates: start: 20120713
  8. MCP [Concomitant]
     Active Substance: METOCLOPRAMIDE HYDROCHLORIDE
     Indication: Adverse event
     Dosage: UNK
     Dates: start: 20120720
  9. NOVALGIN (METAMIZOLE SODIUM) [Concomitant]
     Active Substance: METAMIZOLE SODIUM
     Indication: Adverse event
     Dosage: UNK
  10. PANTOPRAZOLE [Concomitant]
     Active Substance: PANTOPRAZOLE
     Indication: Adverse event
     Dosage: UNK
     Dates: start: 20120720
  11. SANDOCAL [CALCIUM CARBONATE] [Concomitant]
     Indication: Prophylaxis
     Dosage: UNK
     Dates: start: 20120731

REACTIONS (3)
  - Metastases to central nervous system [Not Recovered/Not Resolved]
  - Aspartate aminotransferase increased [Recovered/Resolved]
  - Dyspnoea [Recovered/Resolved]

NARRATIVE: CASE EVENT DATE: 20120625
